FAERS Safety Report 5036392-2 (Version None)
Quarter: 2006Q2

REPORT INFORMATION
  Report Type: 
  Country: None (occurrence: None)
  Receive Date: 20060601
  Receipt Date: 20060413
  Transmission Date: 20061013
  Serious: No
  Sender: FDA-Public Use
  Company Number: US200604002478

PATIENT
  Age: 54 Year
  Sex: Female

DRUGS (3)
  1. CYMBALTA [Suspect]
     Dosage: 30 MG, DAILY (1/D)
     Dates: start: 20060404, end: 20060409
  2. TOPAMAX /AUS/(TOPIRAMATE) [Concomitant]
  3. RESTORIL [Concomitant]

REACTIONS (3)
  - ASTHENIA [None]
  - DYSPNOEA [None]
  - FEELING ABNORMAL [None]
